FAERS Safety Report 4701969-8 (Version None)
Quarter: 2005Q2

REPORT INFORMATION
  Report Type: 
  Country: None (occurrence: None)
  Receive Date: 20050627
  Receipt Date: 20050613
  Transmission Date: 20051028
  Serious: Yes (Hospitalization, Other)
  Sender: FDA-Public Use
  Company Number: 2005080302

PATIENT
  Age: 21 Year
  Sex: Male
  Weight: 54.4316 kg

DRUGS (3)
  1. SOLU-MEDROL [Suspect]
     Indication: PHARYNGEAL OEDEMA
     Dosage: (1  IN 1 TOTAL), INTRAVENOUS
     Route: 042
     Dates: start: 20050506, end: 20050506
  2. ALBUTEROL [Concomitant]
  3. CARDIZEM (DILTIAZEM HYDROCHLROIDE) [Concomitant]

REACTIONS (5)
  - ANXIETY [None]
  - ASTHENIA [None]
  - MEDICATION ERROR [None]
  - PALLOR [None]
  - TACHYCARDIA [None]
